FAERS Safety Report 16420585 (Version 4)
Quarter: 2024Q3

REPORT INFORMATION
  Report Type: Spontaneous
  Country: US (occurrence: US)
  Receive Date: 20190612
  Receipt Date: 20240725
  Transmission Date: 20241016
  Serious: Yes (Other)
  Sender: JOHNSON AND JOHNSON
  Company Number: US-JNJFOC-20190608418

PATIENT
  Age: 5 Month
  Sex: Male
  Weight: 4.224 kg

DRUGS (1)
  1. STELARA [Suspect]
     Active Substance: USTEKINUMAB
     Indication: Psoriasis
     Route: 064
     Dates: start: 20080107, end: 20161207

REACTIONS (3)
  - Cellulitis of male external genital organ [Unknown]
  - Hypospadias [Unknown]
  - Foetal exposure during pregnancy [Recovered/Resolved]

NARRATIVE: CASE EVENT DATE: 20161227
